FAERS Safety Report 9481807 (Version 2)
Quarter: 2013Q3

REPORT INFORMATION
  Report Type: Spontaneous
  Country: US (occurrence: US)
  Receive Date: 20130828
  Receipt Date: 20130828
  Transmission Date: 20140515
  Serious: Yes (Hospitalization)
  Sender: FDA-Public Use
  Company Number: US-AMGEN-KDL233010

PATIENT
  Age: 63 Year
  Sex: Male

DRUGS (16)
  1. ENBREL [Suspect]
     Indication: RHEUMATOID ARTHRITIS
     Dosage: 50 MG, QWK
     Route: 058
     Dates: start: 20070209
  2. METHOTREXATE [Concomitant]
     Dosage: 17.5 MG, QWK
  3. ACETYLSALICYLIC ACID [Concomitant]
     Dosage: 500 MG, QD
  4. PANTOPRAZOLE SODIUM [Concomitant]
     Dosage: 40 MG, QD
  5. VALSARTAN + HYDROCHLOROTHIAZIDE [Concomitant]
     Dosage: UNK UNK, QD
  6. ATORVASTATIN CALCIUM [Concomitant]
     Dosage: 20 MG, UNK
     Dates: start: 2003
  7. ALBUTEROL SULFATE [Concomitant]
     Dosage: UNK UNK, UNK
     Route: 055
  8. TIOTROPIUM BROMIDE [Concomitant]
  9. ZOLPIDEM TARTRATE [Concomitant]
     Dosage: 10 MG, PRN
  10. ACETYLSALICYLIC ACID [Concomitant]
     Dosage: 300 MG, QD
  11. GLYCERYL TRINITRATE [Concomitant]
     Dosage: 4 MG, PRN
     Route: 048
  12. MULTIVITAMINS [Concomitant]
  13. GLUCOSAMINE [Concomitant]
  14. ACETAMINOPHEN W/OXYCODONE [Concomitant]
  15. PREGABALIN [Concomitant]
     Dosage: 150 MG, BID
  16. PREDNISONE [Concomitant]
     Dosage: 5 MG, BID

REACTIONS (4)
  - Aortic aneurysm [Unknown]
  - Cerebrovascular accident [Recovered/Resolved with Sequelae]
  - Peripheral artery thrombosis [Unknown]
  - Incision site infection [Unknown]
